FAERS Safety Report 8840038 (Version 2)
Quarter: 2012Q4

REPORT INFORMATION
  Report Type: 
  Country: US (occurrence: US)
  Receive Date: 20121015
  Receipt Date: 20121207
  Transmission Date: 20130627
  Serious: No
  Sender: FDA-Public Use
  Company Number: US-PFIZER INC-2012253898

PATIENT
  Age: 54 Year
  Sex: Male
  Weight: 97.51 kg

DRUGS (1)
  1. ADVIL PM [Suspect]
     Indication: SLEEP PROBLEM
     Dosage: 200/38 mg, 1x/day
     Route: 048
     Dates: start: 20121008, end: 20121010

REACTIONS (1)
  - Drug ineffective [Not Recovered/Not Resolved]
